FAERS Safety Report 24425487 (Version 1)
Quarter: 2024Q4

REPORT INFORMATION
  Report Type: Spontaneous
  Country: GB (occurrence: GB)
  Receive Date: 20241011
  Receipt Date: 20241011
  Transmission Date: 20250115
  Serious: Yes (Other)
  Sender: ACCORD
  Company Number: GB-Accord-449156

PATIENT
  Age: 7 Decade
  Sex: Male

DRUGS (10)
  1. TIGECYCLINE [Suspect]
     Active Substance: TIGECYCLINE
     Indication: Mycobacterium chelonae infection
     Dosage: REDUCED TO 50 MG OD
     Route: 042
  2. LINEZOLID [Suspect]
     Active Substance: LINEZOLID
     Indication: Mycobacterium chelonae infection
     Dosage: REDUCED
  3. TACROLIMUS [Concomitant]
     Active Substance: TACROLIMUS
     Indication: Immunosuppressant drug therapy
     Dosage: 0.5 MG EVERY 4 DAYS
  4. PREDNISOLONE [Concomitant]
     Active Substance: PREDNISOLONE
     Indication: Immunosuppressant drug therapy
     Dosage: LOW-DOSE
  5. LINEZOLID [Suspect]
     Active Substance: LINEZOLID
     Indication: Mycobacterium chelonae infection
  6. LINEZOLID [Suspect]
     Active Substance: LINEZOLID
     Indication: Abscess bacterial
     Dosage: REDUCED
  7. LINEZOLID [Suspect]
     Active Substance: LINEZOLID
     Indication: Skin bacterial infection
     Dosage: REDUCED
  8. TIGECYCLINE [Suspect]
     Active Substance: TIGECYCLINE
     Indication: Skin bacterial infection
     Dosage: REDUCED TO 50 MG OD
     Route: 042
  9. TIGECYCLINE [Suspect]
     Active Substance: TIGECYCLINE
     Indication: Abscess bacterial
     Dosage: REDUCED TO 50 MG OD
     Route: 042
  10. TACROLIMUS [Concomitant]
     Active Substance: TACROLIMUS
     Indication: Immunosuppressant drug therapy
     Dosage: INCREASED

REACTIONS (6)
  - Decreased appetite [Unknown]
  - Weight decreased [Unknown]
  - Nausea [Unknown]
  - Vomiting [Unknown]
  - Anaemia [Unknown]
  - Renal impairment [Recovered/Resolved]
